FAERS Safety Report 25653554 (Version 2)
Quarter: 2025Q3

REPORT INFORMATION
  Report Type: Spontaneous
  Country: US (occurrence: US)
  Receive Date: 20250807
  Receipt Date: 20250822
  Transmission Date: 20251020
  Serious: Yes (Hospitalization)
  Sender: TEVA
  Company Number: US-TEVA-VS-3357753

PATIENT
  Sex: Male

DRUGS (5)
  1. BUPRENORPHINE [Suspect]
     Active Substance: BUPRENORPHINE
     Indication: Drug abuse
     Route: 042
  2. NALOXONE [Concomitant]
     Active Substance: NALOXONE
     Indication: Mental status changes
     Route: 065
  3. FLUCYTOSINE [Suspect]
     Active Substance: FLUCYTOSINE
     Indication: Cryptococcal meningoencephalitis
     Route: 065
  4. FENTANYL [Suspect]
     Active Substance: FENTANYL
     Indication: Drug abuse
     Route: 042
  5. AMPHOTERICIN B [Suspect]
     Active Substance: AMPHOTERICIN B
     Indication: Cryptococcal meningoencephalitis
     Route: 065

REACTIONS (6)
  - Cryptococcal meningoencephalitis [Unknown]
  - Cerebral infarction [Unknown]
  - Drug ineffective [Unknown]
  - Fall [Unknown]
  - Cerebellar infarction [Unknown]
  - Drug abuse [Unknown]
